FAERS Safety Report 8111239-6 (Version None)
Quarter: 2012Q1

REPORT INFORMATION
  Report Type: 
  Country: None (occurrence: None)
  Receive Date: 20120203
  Receipt Date: 20110708
  Transmission Date: 20120608
  Serious: No
  Sender: FDA-Public Use
  Company Number: US-GLAXOSMITHKLINE-A0936077A

PATIENT
  Age: 25 Year
  Sex: Female

DRUGS (7)
  1. BACLOFEN [Concomitant]
  2. LAMICTAL [Suspect]
     Indication: BIPOLAR DISORDER
     Dosage: 225MG PER DAY
     Route: 048
     Dates: start: 20110201
  3. ZANAFLEX [Concomitant]
  4. PROPRANOLOL [Concomitant]
  5. NEURONTIN [Concomitant]
  6. ELAVIL [Concomitant]
  7. FLONASE [Concomitant]

REACTIONS (2)
  - MENSTRUAL DISORDER [None]
  - CERVICAL CYST [None]
